FAERS Safety Report 4641241-8 (Version None)
Quarter: 2005Q2

REPORT INFORMATION
  Report Type: 
  Country: None (occurrence: None)
  Receive Date: 20050419
  Receipt Date: 20050407
  Transmission Date: 20051028
  Serious: Yes (Hospitalization)
  Sender: FDA-Public Use
  Company Number: 05P-163-0296941-00

PATIENT
  Age: 61 Year
  Sex: Female
  Weight: 93.441 kg

DRUGS (3)
  1. TARKA [Suspect]
     Indication: BLOOD PRESSURE INCREASED
     Dosage: 1 TABLET, 2 IN 1 D, PER ORAL/YEARS
     Route: 048
  2. ATORVASTATIN CALCIUM [Concomitant]
  3. ASPIRIN [Concomitant]

REACTIONS (6)
  - ANXIETY [None]
  - BLOOD PRESSURE INCREASED [None]
  - CHEST PAIN [None]
  - CONDITION AGGRAVATED [None]
  - FATIGUE [None]
  - HYPERHIDROSIS [None]
